FAERS Safety Report 6821138-5 (Version None)
Quarter: 2010Q3

REPORT INFORMATION
  Report Type: 
  Country: None (occurrence: None)
  Receive Date: 20100707
  Receipt Date: 20080310
  Transmission Date: 20110219
  Serious: No
  Sender: FDA-Public Use
  Company Number: US-PFIZER INC-2008022911

PATIENT
  Age: 52 Year
  Sex: Male

DRUGS (7)
  1. ZOLOFT [Suspect]
     Indication: DEPRESSION
     Route: 048
     Dates: start: 20070501, end: 20080301
  2. HYDROCHLOROTHIAZIDE [Concomitant]
  3. LISINOPRIL [Concomitant]
  4. NAPROXEN [Concomitant]
  5. OMEPRAZOLE [Concomitant]
  6. TRAMADOL [Concomitant]
  7. AMLODIPINE [Concomitant]
     Dates: start: 20080101

REACTIONS (2)
  - MUSCLE SPASMS [None]
  - MYALGIA [None]
